FAERS Safety Report 6292161-7 (Version None)
Quarter: 2009Q3

REPORT INFORMATION
  Report Type: 
  Country: None (occurrence: None)
  Receive Date: 20090731
  Receipt Date: 20090728
  Transmission Date: 20100115
  Serious: Yes (Death, Other)
  Sender: FDA-Public Use
  Company Number: JP-JNJFOC-20090206572

PATIENT
  Sex: Male
  Weight: 46 kg

DRUGS (5)
  1. ITRIZOLE [Suspect]
     Indication: ORAL CANDIDIASIS
     Route: 048
  2. EPERISONE HYDROCHLORIDE [Concomitant]
     Indication: CEREBRAL HAEMORRHAGE
     Route: 048
  3. RIVOTRIL [Concomitant]
     Indication: CEREBRAL HAEMORRHAGE
     Route: 048
  4. FAMOTIDINE [Concomitant]
     Indication: GASTRIC ULCER
     Route: 048
  5. PHENYTOIN [Concomitant]
     Indication: CONVULSION
     Route: 048

REACTIONS (8)
  - EOSINOPHILIA [None]
  - GASTROINTESTINAL HAEMORRHAGE [None]
  - PYREXIA [None]
  - RASH [None]
  - RASH GENERALISED [None]
  - SEPTIC SHOCK [None]
  - STAPHYLOCOCCAL INFECTION [None]
  - WHITE BLOOD CELL COUNT INCREASED [None]
